FAERS Safety Report 25060023 (Version 1)
Quarter: 2025Q1

REPORT INFORMATION
  Report Type: Spontaneous
  Country: US (occurrence: US)
  Receive Date: 20250310
  Receipt Date: 20250310
  Transmission Date: 20250409
  Serious: Yes (Hospitalization)
  Sender: BAYER HEALTHCARE PHARMACEUTICALS INC.
  Company Number: US-BAYER-2025A029760

PATIENT
  Sex: Male

DRUGS (1)
  1. XOFIGO [Suspect]
     Active Substance: RADIUM RA-223 DICHLORIDE
     Dates: start: 20250213, end: 20250213

REACTIONS (4)
  - Full blood count abnormal [Unknown]
  - Anaemia [None]
  - Thrombocytopenia [None]
  - Hospice care [None]

NARRATIVE: CASE EVENT DATE: 20250213
